FAERS Safety Report 14422581 (Version 1)
Quarter: 2018Q1

REPORT INFORMATION
  Report Type: Spontaneous
  Country: US (occurrence: US)
  Receive Date: 20180123
  Receipt Date: 20180123
  Transmission Date: 20180509
  Serious: No
  Sender: FDA-Public Use
  Company Number: US-INSYS THERAPEUTICS, INC-INS201711-000662

PATIENT
  Sex: Male
  Weight: 90.71 kg

DRUGS (4)
  1. TYLENOL WITH CODEINE [Concomitant]
     Active Substance: ACETAMINOPHEN\CODEINE PHOSPHATE
  2. ZOFRAN PATCH [Concomitant]
  3. ATIVAN [Concomitant]
     Active Substance: LORAZEPAM
  4. SYNDROS [Suspect]
     Active Substance: DRONABINOL
     Indication: NAUSEA
     Dates: start: 20170808, end: 201710

REACTIONS (2)
  - Medication error [Unknown]
  - Feeling abnormal [Unknown]
